FAERS Safety Report 8464129-3 (Version None)
Quarter: 2012Q2

REPORT INFORMATION
  Report Type: 
  Country: None (occurrence: None)
  Receive Date: 20120625
  Receipt Date: 20120615
  Transmission Date: 20120825
  Serious: Yes (Hospitalization)
  Sender: FDA-Public Use
  Company Number: AU-PURDUE-USA-2012-0089023

PATIENT
  Age: 81 Year
  Sex: Female

DRUGS (11)
  1. OXYCONTIN [Suspect]
     Indication: FIBROMYALGIA
     Dosage: 30 MG, UNK
     Dates: end: 20120528
  2. NEBIVOLOL [Concomitant]
  3. OXYCODONE HCL [Concomitant]
  4. OXYCONTIN [Suspect]
     Indication: OSTEOARTHRITIS
  5. VITAMIN D [Concomitant]
  6. IRBESARTAN + HYDROCHLOROTHIAZIDE [Concomitant]
  7. COLOXYL WITH SENNA [Concomitant]
  8. OXYCONTIN [Suspect]
     Indication: PAIN
     Dosage: 20 MG, UNK
  9. ACETAMINOPHEN [Concomitant]
  10. OMEPRAZOLE [Concomitant]
  11. SYMBICORT [Concomitant]

REACTIONS (7)
  - RHINORRHOEA [None]
  - NERVOUSNESS [None]
  - AGITATION [None]
  - ANAEMIA [None]
  - DRUG WITHDRAWAL SYNDROME [None]
  - PAIN [None]
  - HYPERHIDROSIS [None]
